FAERS Safety Report 5972649-6 (Version None)
Quarter: 2008Q4

REPORT INFORMATION
  Report Type: 
  Country: None (occurrence: None)
  Receive Date: 20081201
  Receipt Date: 20081120
  Transmission Date: 20090506
  Serious: Yes (Other)
  Sender: FDA-Public Use
  Company Number: US-NOVOPROD-278642

PATIENT
  Age: 11 Year
  Sex: Female
  Weight: 33 kg

DRUGS (5)
  1. NORDITROPIN [Suspect]
     Indication: SMALL FOR DATES BABY
     Dosage: 1.5 MG, QD
     Route: 058
     Dates: start: 20020101, end: 20080801
  2. NORDITROPIN [Suspect]
     Dosage: 1.6 MG, QD
     Route: 058
     Dates: start: 20080801
  3. METHOTREXATE [Concomitant]
     Indication: JUVENILE ARTHRITIS
  4. PLAQUENIL                          /00072601/ [Concomitant]
     Indication: JUVENILE ARTHRITIS
  5. FOLIC ACID [Concomitant]
     Indication: JUVENILE ARTHRITIS

REACTIONS (1)
  - SCOLIOSIS [None]
